FAERS Safety Report 4648263-1 (Version None)
Quarter: 2005Q2

REPORT INFORMATION
  Report Type: 
  Country: None (occurrence: None)
  Receive Date: 20050426
  Receipt Date: 20050421
  Transmission Date: 20051028
  Serious: Yes (Other)
  Sender: FDA-Public Use
  Company Number: 2005-03-1208

PATIENT
  Age: 21 Year
  Sex: Female
  Weight: 60.782 kg

DRUGS (2)
  1. CLARITIN-D [Suspect]
     Indication: RHINITIS ALLERGIC
     Dosage: PRN ORAL
     Route: 048
     Dates: start: 20050317, end: 20050317
  2. AMOXICILLIN [Concomitant]

REACTIONS (2)
  - CONFUSIONAL STATE [None]
  - GRAND MAL CONVULSION [None]
